FAERS Safety Report 15143162 (Version 3)
Quarter: 2019Q1

REPORT INFORMATION
  Report Type: Spontaneous
  Country: DE (occurrence: DE)
  Receive Date: 20180713
  Receipt Date: 20190211
  Transmission Date: 20190417
  Serious: Yes (Death, Life-Threatening, Hospitalization)
  Sender: FDA-Public Use
  Company Number: PHHY2013DE176404

PATIENT
  Age: 57 Year
  Sex: Male
  Weight: 86 kg

DRUGS (11)
  1. FLUOROURACIL. [Suspect]
     Active Substance: FLUOROURACIL
     Indication: COLORECTAL CANCER
     Dosage: 800 MG, UNK
     Route: 040
     Dates: start: 20130506
  2. AVASTIN [Suspect]
     Active Substance: BEVACIZUMAB
     Dosage: 400 MG, UNK
     Route: 042
  3. FLUOROURACIL. [Suspect]
     Active Substance: FLUOROURACIL
     Dosage: 1200 MG, UNK
     Route: 041
  4. FLUOROURACIL. [Suspect]
     Active Substance: FLUOROURACIL
     Dosage: 800 MG, UNK
     Route: 040
     Dates: start: 20131023
  5. AVASTIN [Suspect]
     Active Substance: BEVACIZUMAB
     Indication: COLORECTAL CANCER
     Dosage: 425 MG, UNK
     Route: 042
  6. PANTOZOL [Concomitant]
     Active Substance: PANTOPRAZOLE SODIUM
     Indication: PROPHYLAXIS
     Dosage: 40 MG, QD
     Route: 048
     Dates: start: 20130618
  7. REMERGIL [Concomitant]
     Active Substance: MIRTAZAPINE
     Indication: DEPRESSION
     Dosage: 15 MG, QD
     Route: 048
     Dates: start: 20120101
  8. BISOPROLOL [Concomitant]
     Active Substance: BISOPROLOL
     Indication: HYPERTENSION
     Dosage: UNK
     Route: 065
  9. OXALIPLATIN. [Suspect]
     Active Substance: OXALIPLATIN
     Indication: COLORECTAL CANCER
     Dosage: 170 MG, BIW
     Route: 065
     Dates: start: 20130506, end: 20131022
  10. FLUOROURACIL. [Suspect]
     Active Substance: FLUOROURACIL
     Dosage: 1200 MG, UNK
     Route: 041
     Dates: start: 20131024
  11. AVASTIN [Suspect]
     Active Substance: BEVACIZUMAB
     Dosage: 425 UNK, UNK
     Route: 042

REACTIONS (6)
  - Death [Fatal]
  - Abdominal pain [Not Recovered/Not Resolved]
  - Dyspnoea [Not Recovered/Not Resolved]
  - Pulmonary embolism [Recovering/Resolving]
  - Hypertonia [Recovered/Resolved]
  - Hypertension [Recovered/Resolved]

NARRATIVE: CASE EVENT DATE: 20130528
